FAERS Safety Report 10085841 (Version 1)
Quarter: 2014Q2

REPORT INFORMATION
  Report Type: Spontaneous
  Country: US (occurrence: US)
  Receive Date: 20140418
  Receipt Date: 20140418
  Transmission Date: 20141212
  Serious: No
  Sender: FDA-Public Use
  Company Number: US-PFIZER INC-2014104880

PATIENT
  Age: 47 Year
  Sex: Female

DRUGS (8)
  1. EFFEXOR [Suspect]
     Dosage: UNK
  2. VENLAFAXINE HCL [Suspect]
     Dosage: UNK
  3. DOXYCYCLINE HYCLATE [Suspect]
     Dosage: UNK
  4. CLINDAMYCIN HCL [Suspect]
     Dosage: UNK
  5. AUGMENTIN [Suspect]
     Dosage: UNK
  6. CYMBALTA [Suspect]
     Dosage: UNK
  7. AMOXICILLIN W/CLAVULANATE POTASSIUM [Suspect]
     Dosage: UNK
  8. DULOXETINE [Suspect]
     Dosage: UNK

REACTIONS (1)
  - Drug hypersensitivity [Unknown]
